FAERS Safety Report 6985512-9 (Version None)
Quarter: 2010Q3

REPORT INFORMATION
  Report Type: 
  Country: None (occurrence: None)
  Receive Date: 20100915
  Receipt Date: 20100907
  Transmission Date: 20110219
  Serious: Yes (Other)
  Sender: FDA-Public Use
  Company Number: B0674656A

PATIENT
  Age: 45 Year
  Sex: Female

DRUGS (6)
  1. XELODA [Suspect]
     Indication: BREAST CANCER
     Dosage: 2000MGM2 PER DAY
     Route: 065
     Dates: start: 20100101
  2. TYVERB [Suspect]
     Indication: BREAST CANCER
     Dosage: 1250MG PER DAY
     Route: 065
     Dates: start: 20100101
  3. NAVELBINE [Concomitant]
  4. TAXOTERE [Concomitant]
  5. TAXOL [Concomitant]
  6. HERCEPTIN [Concomitant]

REACTIONS (5)
  - HAEMATOTOXICITY [None]
  - NAUSEA [None]
  - NEUROTOXICITY [None]
  - SKIN TOXICITY [None]
  - VOMITING [None]
